FAERS Safety Report 15624880 (Version 1)
Quarter: 2018Q4

REPORT INFORMATION
  Report Type: Spontaneous
  Country: IT (occurrence: IT)
  Receive Date: 20181116
  Receipt Date: 20181116
  Transmission Date: 20190205
  Serious: Yes (Other)
  Sender: FDA-Public Use
  Company Number: PHHY2018IT154549

PATIENT
  Age: 85 Year
  Sex: Male

DRUGS (1)
  1. METHYLPREDNISOLONE. [Suspect]
     Active Substance: METHYLPREDNISOLONE
     Indication: PEMPHIGOID
     Dosage: 6 MG, QD
     Route: 065

REACTIONS (2)
  - Product use in unapproved indication [Unknown]
  - Kaposi^s sarcoma [Unknown]
